FAERS Safety Report 5907672-0 (Version None)
Quarter: 2008Q4

REPORT INFORMATION
  Report Type: 
  Country: None (occurrence: None)
  Receive Date: 20081002
  Receipt Date: 20081002
  Transmission Date: 20090506
  Serious: Yes (Hospitalization)
  Sender: FDA-Public Use
  Company Number: None

PATIENT
  Age: 84 Year
  Sex: Male

DRUGS (3)
  1. WARFARIN SODIUM [Suspect]
     Indication: ATRIAL FIBRILLATION
     Dates: start: 20080529, end: 20080722
  2. WARFARIN SODIUM [Suspect]
     Indication: CORONARY ARTERIAL STENT INSERTION
     Dates: start: 20080529, end: 20080722
  3. CLOPIDOGREL [Suspect]
     Dates: start: 20070524

REACTIONS (4)
  - ANAEMIA [None]
  - HAEMORRHAGE [None]
  - HYPOTENSION [None]
  - MELAENA [None]
